FAERS Safety Report 9741097 (Version 1)
Quarter: 2013Q4

REPORT INFORMATION
  Report Type: Spontaneous
  Country: GB (occurrence: GB)
  Receive Date: 20131209
  Receipt Date: 20131209
  Transmission Date: 20140711
  Serious: Yes (Other)
  Sender: FDA-Public Use
  Company Number: GB-UCBSA-104698

PATIENT
  Age: 75 Year
  Sex: Male

DRUGS (3)
  1. ROTIGOTINE [Suspect]
     Dosage: DOSE: 8
  2. SELEGILINE [Concomitant]
     Dosage: DOSE: 10
  3. SINEMET PLUS [Concomitant]
     Dosage: DOSE: 600

REACTIONS (1)
  - Extrapyramidal disorder [Unknown]
